FAERS Safety Report 4576195-6 (Version None)
Quarter: 2005Q1

REPORT INFORMATION
  Report Type: 
  Country: None (occurrence: None)
  Receive Date: 20050119
  Receipt Date: 20041015
  Transmission Date: 20050727
  Serious: Yes (Hospitalization)
  Sender: FDA-Public Use
  Company Number: A03200403466

PATIENT
  Age: 77 Year
  Sex: Female
  Weight: 126.1 kg

DRUGS (4)
  1. PLAVIX [Suspect]
     Indication: CORONARY ARTERIAL STENT INSERTION
     Dosage: 75 MG QD - ORAL
     Route: 048
     Dates: start: 20041009, end: 20041010
  2. WARFARIN SODIUM [Concomitant]
  3. LEVOTHYROXINE SODIUM [Concomitant]
  4. HYDROXYPROPYL METHYLCELLULOSE [Concomitant]

REACTIONS (2)
  - PRURITUS GENERALISED [None]
  - RASH GENERALISED [None]
